FAERS Safety Report 21769170 (Version 2)
Quarter: 2022Q4

REPORT INFORMATION
  Report Type: Spontaneous
  Country: DE (occurrence: DE)
  Receive Date: 20221222
  Receipt Date: 20221229
  Transmission Date: 20230112
  Serious: Yes (Other)
  Sender: FDA-Public Use
  Company Number: None

PATIENT
  Age: 63 Year
  Sex: Female
  Weight: 63 kg

DRUGS (8)
  1. LOSARTAN [Suspect]
     Active Substance: LOSARTAN
     Indication: Product used for unknown indication
     Dosage: 1-0-0-0, 100 MG
     Route: 048
     Dates: start: 2017, end: 202210
  2. SITAGLIPTIN PHOSPHATE [Suspect]
     Active Substance: SITAGLIPTIN PHOSPHATE
     Indication: Product used for unknown indication
     Dosage: 1-0-0-0, 100 MG
     Route: 048
     Dates: start: 2017, end: 202210
  3. DAPAGLIFLOZIN [Suspect]
     Active Substance: DAPAGLIFLOZIN
     Indication: Product used for unknown indication
     Dosage: 1-0-0-0, 10 MG
     Route: 048
     Dates: start: 2017, end: 202210
  4. ALLOPURINOL [Concomitant]
     Active Substance: ALLOPURINOL
     Indication: Product used for unknown indication
     Dosage: 1-0-0-0, 300 MG
     Route: 048
     Dates: start: 2017, end: 202210
  5. BISOPROLOL [Concomitant]
     Active Substance: BISOPROLOL
     Indication: Product used for unknown indication
     Dosage: 1-0-0-0
     Route: 048
     Dates: start: 2017
  6. Metex [Concomitant]
     Indication: Product used for unknown indication
     Dosage: UNKNOWN
     Route: 065
     Dates: end: 202211
  7. METFORMIN [Concomitant]
     Active Substance: METFORMIN HYDROCHLORIDE
     Indication: Product used for unknown indication
     Dosage: 1-0-1-0, 1000 MG
     Route: 048
     Dates: start: 2017
  8. PANTOPRAZOLE [Concomitant]
     Active Substance: PANTOPRAZOLE
     Indication: Product used for unknown indication
     Dosage: 1-0-0-0, 20 MG
     Route: 048
     Dates: start: 2017, end: 202210

REACTIONS (6)
  - Fatigue [Recovered/Resolved]
  - Back pain [Recovered/Resolved]
  - Nausea [Recovered/Resolved]
  - Pancreatitis [Recovered/Resolved]
  - Hepatitis [Recovered/Resolved]
  - Genital infection [Recovered/Resolved]

NARRATIVE: CASE EVENT DATE: 20170101
